FAERS Safety Report 7208371-8 (Version None)
Quarter: 2011Q1

REPORT INFORMATION
  Report Type: 
  Country: None (occurrence: None)
  Receive Date: 20110104
  Receipt Date: 20101221
  Transmission Date: 20110831
  Serious: No
  Sender: FDA-Public Use
  Company Number: PHHY2010FR80482

PATIENT
  Sex: Female
  Weight: 80 kg

DRUGS (5)
  1. RASILEZ [Suspect]
     Indication: HYPERTENSION
     Dosage: 150 MG, QD
     Route: 048
     Dates: start: 20101105, end: 20101126
  2. VELMETIA (METFORMIN/SITAGLIPTIN) [Concomitant]
     Dosage: 1 DF, BID
     Dates: end: 20101115
  3. DIAMICRON [Concomitant]
     Dosage: 1 DF, BID
     Dates: start: 20101115
  4. AERIUS [Concomitant]
     Dosage: 1 DF, QD
     Dates: start: 20101027, end: 20101126
  5. EVISTA [Concomitant]
     Dosage: 1 DF, QD
     Dates: start: 20020101

REACTIONS (4)
  - DYSPNOEA [None]
  - ASTHENIA [None]
  - COUGH [None]
  - RESPIRATORY DISORDER [None]
